FAERS Safety Report 13869228 (Version 3)
Quarter: 2022Q2

REPORT INFORMATION
  Report Type: Report from Study
  Country: CA (occurrence: CA)
  Receive Date: 20170815
  Receipt Date: 20220513
  Transmission Date: 20220721
  Serious: Yes (Other)
  Sender: FDA-Public Use
  Company Number: CA-TAKEDA-2017TUS016693

PATIENT
  Age: 25 Year
  Sex: Male

DRUGS (7)
  1. PANTOPRAZOLE SODIUM [Suspect]
     Active Substance: PANTOPRAZOLE SODIUM
     Dosage: 40 MILLIGRAM
     Route: 065
     Dates: start: 2014
  2. ENTYVIO [Suspect]
     Active Substance: VEDOLIZUMAB
     Indication: Colitis ulcerative
     Dosage: 300 MILLIGRAM
     Route: 042
     Dates: start: 20161207
  3. ENTYVIO [Suspect]
     Active Substance: VEDOLIZUMAB
     Dosage: 300 MILLIGRAM
     Route: 042
  4. ENTYVIO [Suspect]
     Active Substance: VEDOLIZUMAB
     Dosage: 300 MILLIGRAM, Q4WEEKS
     Dates: start: 20211029
  5. PREDNISONE [Concomitant]
     Active Substance: PREDNISONE
     Dosage: 40 MILLIGRAM
     Dates: start: 20161012
  6. MESALAMINE [Concomitant]
     Active Substance: MESALAMINE
     Dosage: UNK
  7. ASPIRIN [Concomitant]
     Active Substance: ASPIRIN
     Dosage: UNK
     Route: 054

REACTIONS (3)
  - Pneumonia [Not Recovered/Not Resolved]
  - Suspected COVID-19 [Not Recovered/Not Resolved]
  - COVID-19 [Unknown]

NARRATIVE: CASE EVENT DATE: 20170101
